FAERS Safety Report 7903602-0 (Version None)
Quarter: 2011Q4

REPORT INFORMATION
  Report Type: 
  Country: None (occurrence: None)
  Receive Date: 20111109
  Receipt Date: 20111027
  Transmission Date: 20120403
  Serious: Yes (Life-Threatening, Hospitalization, Other)
  Sender: FDA-Public Use
  Company Number: US-ELI_LILLY_AND_COMPANY-US201105000317

PATIENT
  Sex: Male

DRUGS (22)
  1. FORTEO [Suspect]
     Indication: OSTEOPOROSIS
     Dosage: 20 UG, QD
  2. FORTEO [Suspect]
     Dosage: 20 UG, QD
  3. AMBIEN [Concomitant]
     Dosage: 10 MG, UNK
  4. OXYGEN [Concomitant]
  5. VITAMIN D [Concomitant]
     Dosage: UNK, WEEKLY (1/W)
  6. FORTEO [Suspect]
     Dosage: 20 UG, QD
  7. COUMADIN [Concomitant]
     Dosage: 2.5 MG, UNK
  8. SPIRIVA [Concomitant]
     Dosage: UNK, QD
  9. CRESTOR [Concomitant]
     Dosage: UNK, QD
  10. METROCREAM [Concomitant]
     Indication: RASH
  11. EFFEXOR XR [Concomitant]
     Dosage: UNK UNK, QD
  12. XOPENEX [Concomitant]
     Indication: DYSPNOEA
  13. POTASSIUM [Concomitant]
     Dosage: 20 MG, UNK
  14. NEXIUM [Concomitant]
     Dosage: 40 MG, QD
  15. LOPRESSOR [Concomitant]
     Dosage: 75 MG, UNK
  16. LOTENSIN [Concomitant]
     Dosage: 5 MG, UNK
     Route: 048
     Dates: end: 20111029
  17. HYDROCODONE BITARTRATE [Concomitant]
     Dosage: UNK, PRN
  18. COUMADIN [Concomitant]
     Dosage: 5 MG, WEEKLY (1/W)
  19. XANAX [Concomitant]
     Dosage: 25 MG, UNK
  20. PREDNISONE [Concomitant]
     Dosage: 12.5 MG, UNK
  21. PULMICORT [Concomitant]
     Dosage: UNK, BID
  22. NITROGLYCERIN SPRAY [Concomitant]

REACTIONS (8)
  - CHRONIC OBSTRUCTIVE PULMONARY DISEASE [None]
  - BONE PAIN [None]
  - VISUAL IMPAIRMENT [None]
  - INJECTION SITE HAEMATOMA [None]
  - CORONARY ARTERY DISEASE [None]
  - UNRESPONSIVE TO STIMULI [None]
  - MUSCLE SPASMS [None]
  - OEDEMA PERIPHERAL [None]
